FAERS Safety Report 6158828-6 (Version None)
Quarter: 2009Q2

REPORT INFORMATION
  Report Type: 
  Country: None (occurrence: None)
  Receive Date: 20090408
  Receipt Date: 20090116
  Transmission Date: 20091009
  Serious: Yes (Death)
  Sender: FDA-Public Use
  Company Number: BMS-LI-2009-0004-V001

PATIENT
  Age: 34 Year
  Sex: Male

DRUGS (11)
  1. TRAZODONE HYDROCHLORIDE [Suspect]
  2. ATENOLOL [Suspect]
  3. PHENYTOIN [Suspect]
  4. FENOFIBRATE [Suspect]
  5. OXYCODONE HCL [Suspect]
  6. COLCHICINE [Suspect]
  7. GEMFIBROZIL [Suspect]
  8. MIRTAZAPINE [Suspect]
  9. HALOPERIDOL [Suspect]
  10. INDOMETHACIN [Suspect]
  11. LOSARTAN POTASSIUM [Suspect]

REACTIONS (1)
  - COMPLETED SUICIDE [None]
